FAERS Safety Report 25139722 (Version 1)
Quarter: 2025Q1

REPORT INFORMATION
  Report Type: Spontaneous
  Country: FR (occurrence: FR)
  Receive Date: 20250331
  Receipt Date: 20250331
  Transmission Date: 20250409
  Serious: Yes (Hospitalization)
  Sender: GILEAD
  Company Number: FR-GILEAD-2025-0708438

PATIENT
  Sex: Female

DRUGS (1)
  1. TRODELVY [Suspect]
     Active Substance: SACITUZUMAB GOVITECAN-HZIY
     Indication: Gilbert^s syndrome
     Route: 065
     Dates: start: 2022

REACTIONS (4)
  - Enteritis [Unknown]
  - Pain [Unknown]
  - Incorrect dose administered [Unknown]
  - Product use in unapproved indication [Recovered/Resolved]
